FAERS Safety Report 4717398-7 (Version None)
Quarter: 2005Q3

REPORT INFORMATION
  Report Type: 
  Country: None (occurrence: None)
  Receive Date: 20050711
  Receipt Date: 20050516
  Transmission Date: 20060218
  Serious: No
  Sender: FDA-Public Use
  Company Number: A03200501483

PATIENT
  Sex: Male

DRUGS (1)
  1. UROXATRAL [Suspect]
     Dosage: ORAL
     Route: 048

REACTIONS (1)
  - PROSTATIC SPECIFIC ANTIGEN INCREASED [None]
